FAERS Safety Report 24090782 (Version 1)
Quarter: 2024Q3

REPORT INFORMATION
  Report Type: Spontaneous
  Country: US (occurrence: None)
  Receive Date: 20240712
  Receipt Date: 20240712
  Transmission Date: 20241016
  Serious: Yes (Hospitalization)
  Sender: Public
  Company Number: None

PATIENT
  Age: 54 Year
  Sex: Female
  Weight: 64.8 kg

DRUGS (1)
  1. DEXAMETHASONE [Suspect]
     Active Substance: DEXAMETHASONE

REACTIONS (5)
  - Illness [None]
  - Hypertension [None]
  - Dyspnoea [None]
  - Heart rate increased [None]
  - Decreased appetite [None]

NARRATIVE: CASE EVENT DATE: 20240703
